FAERS Safety Report 19490329 (Version 1)
Quarter: 2021Q3

REPORT INFORMATION
  Report Type: Spontaneous
  Country: FR (occurrence: FR)
  Receive Date: 20210705
  Receipt Date: 20210705
  Transmission Date: 20211014
  Serious: Yes (Hospitalization, Other)
  Sender: FDA-Public Use
  Company Number: FR-AUROBINDO-AUR-APL-2021-028575

PATIENT
  Age: 54 Year
  Sex: Male
  Weight: 83 kg

DRUGS (15)
  1. ENDOXAN [Suspect]
     Active Substance: CYCLOPHOSPHAMIDE
     Dosage: UNK
     Route: 041
     Dates: start: 201003, end: 20100707
  2. MABTHERA [Concomitant]
     Active Substance: RITUXIMAB
     Dosage: 760 MILLIGRAM, 8 TIMES A WEEK
     Route: 041
     Dates: start: 20110120, end: 20120920
  3. BICNU [Suspect]
     Active Substance: CARMUSTINE
     Indication: PRODUCT USED FOR UNKNOWN INDICATION
     Dosage: 610 MILLIGRAM, 1 TOTAL
     Route: 041
     Dates: start: 20100923, end: 20100923
  4. ETOPOPHOS [Suspect]
     Active Substance: ETOPOSIDE PHOSPHATE
     Indication: PRODUCT USED FOR UNKNOWN INDICATION
     Dosage: 810 MILLIGRAM
     Route: 041
     Dates: start: 20100924, end: 20100927
  5. ZEVALIN [Suspect]
     Active Substance: IBRITUMOMAB TIUXETAN
     Indication: PRODUCT USED FOR UNKNOWN INDICATION
     Dosage: 962 MEGABECQUEREL, 1 TOTAL
     Route: 041
     Dates: start: 20100917, end: 20100917
  6. ALKERAN [Suspect]
     Active Substance: MELPHALAN
     Indication: PRODUCT USED FOR UNKNOWN INDICATION
     Dosage: 284 MILLIGRAM, 1 TOTAL
     Route: 065
  7. DOXORUBICIN HYDROCHLORIDE. [Suspect]
     Active Substance: DOXORUBICIN HYDROCHLORIDE
     Indication: PRODUCT USED FOR UNKNOWN INDICATION
     Dosage: UNK
     Route: 041
     Dates: start: 20040205, end: 200407
  8. INTERFERON [Concomitant]
     Active Substance: INTERFERON
     Indication: PRODUCT USED FOR UNKNOWN INDICATION
     Dosage: UNK
     Route: 065
     Dates: start: 20040205, end: 200501
  9. MABTHERA [Concomitant]
     Active Substance: RITUXIMAB
     Dosage: UNK
     Route: 041
     Dates: start: 201003, end: 20100707
  10. FLUDARABINE PHOSPHATE. [Suspect]
     Active Substance: FLUDARABINE PHOSPHATE
     Indication: PRODUCT USED FOR UNKNOWN INDICATION
     Dosage: UNK
     Route: 041
     Dates: start: 201003, end: 20100707
  11. CYTARABINE. [Concomitant]
     Active Substance: CYTARABINE
     Indication: PRODUCT USED FOR UNKNOWN INDICATION
     Dosage: 810 MILLIGRAM, ONCE A DAY
     Route: 041
     Dates: start: 20100924, end: 20100927
  12. MABTHERA [Concomitant]
     Active Substance: RITUXIMAB
     Indication: PRODUCT USED FOR UNKNOWN INDICATION
     Dosage: UNK
     Route: 041
     Dates: start: 20040205, end: 200507
  13. MABTHERA [Concomitant]
     Active Substance: RITUXIMAB
     Dosage: 510 MILLIGRAM, ONCE A WEEK
     Route: 041
     Dates: start: 20100909, end: 20100916
  14. ENDOXAN [Suspect]
     Active Substance: CYCLOPHOSPHAMIDE
     Indication: PRODUCT USED FOR UNKNOWN INDICATION
     Dosage: UNK
     Route: 041
     Dates: start: 20040205, end: 200407
  15. ETOPOSIDE. [Suspect]
     Active Substance: ETOPOSIDE
     Indication: PRODUCT USED FOR UNKNOWN INDICATION
     Dosage: UNK
     Route: 041
     Dates: start: 20040205, end: 200407

REACTIONS (1)
  - 5q minus syndrome [Unknown]

NARRATIVE: CASE EVENT DATE: 201412
